FAERS Safety Report 9838131 (Version 1)
Quarter: 2013Q4

REPORT INFORMATION
  Report Type: Spontaneous
  Country: US (occurrence: None)
  Receive Date: 20131205
  Receipt Date: 20131205
  Transmission Date: 20140711
  Serious: Yes (Other)
  Sender: FDA-Public Use
  Company Number: 163-POMAL-13104275

PATIENT
  Age: 71 Year
  Sex: Female
  Weight: 76.2 kg

DRUGS (10)
  1. POMALYST [Suspect]
     Indication: PLASMA CELL MYELOMA
     Dosage: 21 IN 28 D
     Route: 048
     Dates: start: 20130905
  2. WARFARIN [Concomitant]
  3. LYRICA [Concomitant]
  4. DEXAMETHASONE [Concomitant]
  5. OMEPRAZOLE [Concomitant]
  6. LOPERAMIDE [Concomitant]
  7. HYDROCODONE [Concomitant]
  8. VITAMIN B6 [Concomitant]
  9. CITRACAL PLUS [Concomitant]
  10. BENADRYL ALLERGY [Concomitant]

REACTIONS (1)
  - Anaemia [None]
